FAERS Safety Report 21701386 (Version 1)
Quarter: 2022Q4

REPORT INFORMATION
  Report Type: Other
  Country: US (occurrence: None)
  Receive Date: 20221208
  Receipt Date: 20221208
  Transmission Date: 20230112
  Serious: Yes (Hospitalization)
  Sender: FDA-Public Use
  Company Number: US-ROCHE-3229637

PATIENT
  Age: 40 Year
  Sex: Female

DRUGS (1)
  1. OCREVUS [Suspect]
     Active Substance: OCRELIZUMAB
     Indication: Relapsing multiple sclerosis
     Dosage: 300 MG SINGLE-USE VIAL, DATE OF SERVICE: 05/23/22, 05/UN/2019,  14/DEC/2021, 15/JUN/2021, 14/DEC/202
     Route: 065
     Dates: start: 20171108, end: 202209

REACTIONS (1)
  - Neoplasm malignant [Not Recovered/Not Resolved]
